FAERS Safety Report 7800200-4 (Version None)
Quarter: 2011Q4

REPORT INFORMATION
  Report Type: 
  Country: None (occurrence: None)
  Receive Date: 20111006
  Receipt Date: 20110927
  Transmission Date: 20120403
  Serious: Yes (Hospitalization, Other)
  Sender: FDA-Public Use
  Company Number: US-ASTRAZENECA-2011SE38605

PATIENT
  Age: 56 Year
  Sex: Female
  Weight: 148.3 kg

DRUGS (1)
  1. ATACAND [Suspect]
     Route: 048

REACTIONS (5)
  - GALLBLADDER DISORDER [None]
  - RENAL CYST [None]
  - UTERINE LEIOMYOMA [None]
  - CARDIOMEGALY [None]
  - BILIARY DYSKINESIA [None]
